FAERS Safety Report 14733206 (Version 1)
Quarter: 2018Q2

REPORT INFORMATION
  Report Type: Spontaneous
  Country: DE (occurrence: DE)
  Receive Date: 20180409
  Receipt Date: 20180409
  Transmission Date: 20180711
  Serious: Yes (Hospitalization)
  Sender: FDA-Public Use
  Company Number: PHHY2018DE061297

PATIENT
  Sex: Female
  Weight: 66 kg

DRUGS (9)
  1. ONCOFOLIC [Suspect]
     Active Substance: FOLATE SODIUM
     Indication: ADENOCARCINOMA PANCREAS
     Dosage: 850 MG, UNK
     Route: 042
  2. ONCOFOLIC [Suspect]
     Active Substance: FOLATE SODIUM
     Dosage: 850 MG, UNK
     Route: 042
     Dates: start: 20170707
  3. ALOXI [Concomitant]
     Active Substance: PALONOSETRON HYDROCHLORIDE
     Indication: PROPHYLAXIS
     Dosage: 250 MG, UNK
     Route: 042
     Dates: end: 20170707
  4. ALOXI [Concomitant]
     Active Substance: PALONOSETRON HYDROCHLORIDE
     Indication: ADENOCARCINOMA PANCREAS
     Dosage: 250 MG, UNK
     Route: 042
     Dates: start: 20170707
  5. OXALIPLATIN. [Suspect]
     Active Substance: OXALIPLATIN
     Dosage: 140 MG, UNK
     Route: 042
     Dates: start: 20170707
  6. FLUOROURACIL. [Suspect]
     Active Substance: FLUOROURACIL
     Indication: ADENOCARCINOMA PANCREAS
     Dosage: 3000 MG, UNK
     Route: 042
  7. OXALIPLATIN. [Suspect]
     Active Substance: OXALIPLATIN
     Indication: ADENOCARCINOMA PANCREAS
     Dosage: 140 MG, UNK
     Route: 042
  8. DEXAMETHASONE. [Concomitant]
     Active Substance: DEXAMETHASONE
     Indication: PROPHYLAXIS
     Dosage: 16 MG, UNK
     Route: 042
     Dates: start: 20170707
  9. DEXAMETHASONE. [Concomitant]
     Active Substance: DEXAMETHASONE
     Indication: ADENOCARCINOMA PANCREAS

REACTIONS (1)
  - Pancytopenia [Recovered/Resolved]

NARRATIVE: CASE EVENT DATE: 20170709
